FAERS Safety Report 17454576 (Version 1)
Quarter: 2020Q1

REPORT INFORMATION
  Report Type: Spontaneous
  Country: GB (occurrence: GB)
  Receive Date: 20200225
  Receipt Date: 20200225
  Transmission Date: 20200409
  Serious: Yes (Life-Threatening)
  Sender: FDA-Public Use
  Company Number: GB-TEVA-2020-GB-1190774

PATIENT
  Age: 79 Year
  Sex: Male
  Weight: 115 kg

DRUGS (11)
  1. GLICLAZIDE [Concomitant]
     Active Substance: GLICLAZIDE
  2. PIOGLITAZONE. [Suspect]
     Active Substance: PIOGLITAZONE
     Indication: TYPE 2 DIABETES MELLITUS
     Dosage: 15 MG
     Route: 048
     Dates: start: 20151223, end: 20200130
  3. METFORMIN HYDROCHLORIDE. [Concomitant]
     Active Substance: METFORMIN HYDROCHLORIDE
  4. AZATHIOPRINE. [Concomitant]
     Active Substance: AZATHIOPRINE
  5. RAMIPRIL. [Concomitant]
     Active Substance: RAMIPRIL
  6. ATORVASTATIN [Concomitant]
     Active Substance: ATORVASTATIN
  7. LERCANIDIPINE [Concomitant]
     Active Substance: LERCANIDIPINE
  8. ATENOLOL. [Concomitant]
     Active Substance: ATENOLOL
  9. HYDROXOCOBALAMIN [Concomitant]
     Active Substance: HYDROXOCOBALAMIN
  10. OMEPRAZOLE. [Concomitant]
     Active Substance: OMEPRAZOLE
  11. ACETYLSALICYLIC ACID [Concomitant]
     Active Substance: ASPIRIN

REACTIONS (1)
  - Bladder cancer [Unknown]

NARRATIVE: CASE EVENT DATE: 20191210
